FAERS Safety Report 17955212 (Version 1)
Quarter: 2020Q2

REPORT INFORMATION
  Report Type: Spontaneous
  Country: US (occurrence: US)
  Receive Date: 20200626
  Receipt Date: 20200626
  Transmission Date: 20200714
  Serious: Yes (Death)
  Sender: FDA-Public Use
  Company Number: None

PATIENT
  Age: 77 Year
  Sex: Male

DRUGS (8)
  1. LEVETIRACETA [Concomitant]
     Active Substance: LEVETIRACETAM
  2. NEUPOGEN [Suspect]
     Active Substance: FILGRASTIM
     Route: 058
     Dates: start: 20180620
  3. NEUPOGEN [Suspect]
     Active Substance: FILGRASTIM
     Dates: start: 20180620, end: 20200625
  4. ALBUTEROL NEB [Concomitant]
     Active Substance: ALBUTEROL
  5. BROVANA [Concomitant]
     Active Substance: ARFORMOTEROL TARTRATE
  6. LEVOTHYROXIN [Concomitant]
     Active Substance: LEVOTHYROXINE
  7. MUPIROCIN. [Concomitant]
     Active Substance: MUPIROCIN
  8. GABAPENTIN. [Concomitant]
     Active Substance: GABAPENTIN

REACTIONS (1)
  - Death [None]

NARRATIVE: CASE EVENT DATE: 20200625
